FAERS Safety Report 5531003-1 (Version None)
Quarter: 2007Q4

REPORT INFORMATION
  Report Type: 
  Country: None (occurrence: None)
  Receive Date: 20071130
  Receipt Date: 20071121
  Transmission Date: 20080405
  Serious: Yes (Other)
  Sender: FDA-Public Use
  Company Number: FR-PFIZER INC-2007090587

PATIENT
  Sex: Female
  Weight: 60 kg

DRUGS (6)
  1. TAHOR [Suspect]
  2. ACEBUTOLOL HYDROCHLORIDE [Concomitant]
  3. KARDEGIC [Concomitant]
     Dosage: DAILY DOSE:160MG-FREQ:DAILY
  4. LEVOTHYROXINE SODIUM [Concomitant]
  5. OMEPRAZOLE [Concomitant]
  6. LEXOMIL [Concomitant]
     Dosage: DAILY DOSE:3MG-FREQ:DAILY

REACTIONS (5)
  - BLOOD CREATINE PHOSPHOKINASE INCREASED [None]
  - BRAIN NATRIURETIC PEPTIDE INCREASED [None]
  - LOW DENSITY LIPOPROTEIN INCREASED [None]
  - MYALGIA [None]
  - TRANSAMINASES INCREASED [None]
